FAERS Safety Report 6660451-1 (Version None)
Quarter: 2010Q1

REPORT INFORMATION
  Report Type: 
  Country: None (occurrence: None)
  Receive Date: 20100326
  Receipt Date: 20100316
  Transmission Date: 20100710
  Serious: Yes (Hospitalization)
  Sender: FDA-Public Use
  Company Number: 483795

PATIENT
  Age: 43 Year
  Sex: Female

DRUGS (1)
  1. CYTARABINE [Suspect]
     Dosage: 8.8 G INTRAVENOUS
     Route: 042
     Dates: start: 20091216, end: 20091218

REACTIONS (2)
  - PANCYTOPENIA [None]
  - PYREXIA [None]
